FAERS Safety Report 11773590 (Version 1)
Quarter: 2015Q4

REPORT INFORMATION
  Report Type: Spontaneous
  Country: US (occurrence: US)
  Receive Date: 20151124
  Receipt Date: 20151124
  Transmission Date: 20160304
  Serious: No
  Sender: FDA-Public Use
  Company Number: US-PFIZER INC-2015364962

PATIENT
  Age: 68 Year
  Sex: Male
  Weight: 73 kg

DRUGS (4)
  1. INLYTA [Suspect]
     Active Substance: AXITINIB
     Indication: RENAL CANCER
     Dosage: 5 MG, UNK
     Dates: start: 2015, end: 2015
  2. INLYTA [Suspect]
     Active Substance: AXITINIB
     Dosage: 1 MG, EVERY 12 HOUR
     Dates: start: 2015, end: 2015
  3. INLYTA [Suspect]
     Active Substance: AXITINIB
     Dosage: 3 MG, 3X1MG TABLETS EVERY 12 HOURS]
     Dates: start: 2015, end: 20151015
  4. LOVENOX [Concomitant]
     Active Substance: ENOXAPARIN SODIUM
     Dosage: UNK

REACTIONS (2)
  - Decreased appetite [Unknown]
  - Weight decreased [Unknown]

NARRATIVE: CASE EVENT DATE: 2015
